FAERS Safety Report 8373280-8 (Version None)
Quarter: 2012Q2

REPORT INFORMATION
  Report Type: 
  Country: None (occurrence: None)
  Receive Date: 20120521
  Receipt Date: 20110408
  Transmission Date: 20120825
  Serious: No
  Sender: FDA-Public Use
  Company Number: US-TEVA-2011000882

PATIENT
  Sex: Male
  Weight: 78.542 kg

DRUGS (9)
  1. ALOXI [Concomitant]
     Route: 042
     Dates: start: 20110126
  2. GAMUNEX [Concomitant]
     Dates: start: 20101007
  3. BENADRYL [Concomitant]
     Dates: start: 20110125
  4. TREANDA [Suspect]
     Indication: CHRONIC LYMPHOCYTIC LEUKAEMIA
     Route: 042
     Dates: start: 20110125
  5. RITUXAN [Concomitant]
     Indication: CHRONIC LYMPHOCYTIC LEUKAEMIA
     Route: 002
     Dates: start: 20110125
  6. DEXAMETHASONE [Concomitant]
     Dates: start: 20110125
  7. ZANTAC [Concomitant]
     Route: 048
     Dates: start: 20110125
  8. KYTRIL [Concomitant]
     Route: 042
     Dates: start: 20110125
  9. HYDROCORTISONE [Concomitant]

REACTIONS (4)
  - INFUSION SITE SWELLING [None]
  - OEDEMA PERIPHERAL [None]
  - EXTRAVASATION [None]
  - INFUSION SITE ERYTHEMA [None]
